FAERS Safety Report 5140622-6 (Version None)
Quarter: 2006Q4

REPORT INFORMATION
  Report Type: 
  Country: None (occurrence: None)
  Receive Date: 20061025
  Receipt Date: 20061017
  Transmission Date: 20070319
  Serious: Yes (Hospitalization)
  Sender: FDA-Public Use
  Company Number: 2006-02705

PATIENT
  Age: 65 Year
  Sex: 0

DRUGS (8)
  1. VELCADE [Suspect]
     Indication: MULTIPLE MYELOMA
     Dosage: INTRAVENOUS
     Route: 042
  2. DOXORUBICIN HCL [Suspect]
     Indication: MULTIPLE MYELOMA
  3. JODID (POTASSIUM IODIDE) [Concomitant]
  4. PANTOPRAZOLE SODIUM [Concomitant]
  5. LYRICA [Concomitant]
  6. ACYCLOVIR [Concomitant]
  7. DEXAMETHASONE [Suspect]
     Indication: MULTIPLE MYELOMA
  8. MELPHALAN (MELPHALAN) VIAL [Suspect]
     Indication: MULTIPLE MYELOMA

REACTIONS (2)
  - ARTHRITIS REACTIVE [None]
  - FEBRILE INFECTION [None]
